FAERS Safety Report 8834814 (Version 1)
Quarter: 2012Q4

REPORT INFORMATION
  Report Type: Spontaneous
  Country: GB (occurrence: None)
  Receive Date: 20121009
  Receipt Date: 20121009
  Transmission Date: 20130627
  Serious: Yes (Disabling, Other)
  Sender: FDA-Public Use
  Company Number: AUR-APL-2012-04223

PATIENT
  Age: 36 Year
  Sex: Female
  Weight: 105.6 kg

DRUGS (4)
  1. SIMVASTATIN (SIMVASTATIN) [Suspect]
     Indication: HIGH CHOLESTEROL
     Route: 048
     Dates: start: 20120420, end: 20120916
  2. RAMIPRIL (RAMIPRIL) [Concomitant]
  3. SALBUTAMOL (SALBUTAMOL) [Concomitant]
  4. SERETIDE (SERETIDE /01420901/) [Concomitant]

REACTIONS (6)
  - Dizziness [None]
  - Dyspepsia [None]
  - Hunger [None]
  - Insomnia [None]
  - Pain in extremity [None]
  - Pain in extremity [None]
